FAERS Safety Report 7689639-8 (Version None)
Quarter: 2011Q3

REPORT INFORMATION
  Report Type: 
  Country: None (occurrence: None)
  Receive Date: 20110817
  Receipt Date: 20110808
  Transmission Date: 20111222
  Serious: Yes (Hospitalization, Other)
  Sender: FDA-Public Use
  Company Number: US-ASTRAZENECA-2009SE32961

PATIENT
  Age: 55 Year
  Sex: Female
  Weight: 49.9 kg

DRUGS (3)
  1. SEROQUEL [Suspect]
     Indication: BIPOLAR DISORDER
     Route: 048
     Dates: start: 20010101, end: 20110701
  2. SEROQUEL [Suspect]
     Route: 048
     Dates: start: 20110701
  3. TRAZODONE HCL [Concomitant]
     Indication: BIPOLAR DISORDER

REACTIONS (9)
  - SOMNAMBULISM [None]
  - HIP FRACTURE [None]
  - INTENTIONAL DRUG MISUSE [None]
  - SLEEP TALKING [None]
  - HAND FRACTURE [None]
  - FALL [None]
  - DRUG DOSE OMISSION [None]
  - WEIGHT GAIN POOR [None]
  - STRESS [None]
